FAERS Safety Report 19498435 (Version 2)
Quarter: 2021Q3

REPORT INFORMATION
  Report Type: Spontaneous
  Country: ES (occurrence: ES)
  Receive Date: 20210706
  Receipt Date: 20210918
  Transmission Date: 20211014
  Serious: Yes (Other)
  Sender: FDA-Public Use
  Company Number: ES-ROCHE-2860410

PATIENT
  Sex: Female

DRUGS (7)
  1. MEGESTROL [Concomitant]
     Active Substance: MEGESTROL
  2. ATEZOLIZUMAB. [Suspect]
     Active Substance: ATEZOLIZUMAB
     Dosage: C4 01/10/21 ATEZOLIZUMAB AS MAINTENANCE.
     Route: 042
     Dates: start: 20210910
  3. ATEZOLIZUMAB. [Suspect]
     Active Substance: ATEZOLIZUMAB
     Dosage: AS MAINTENANCE
     Route: 042
     Dates: start: 20210730
  4. CARBOPLATIN. [Suspect]
     Active Substance: CARBOPLATIN
     Indication: SMALL CELL LUNG CANCER
     Route: 065
  5. ATEZOLIZUMAB. [Suspect]
     Active Substance: ATEZOLIZUMAB
     Dosage: AS MAINTENANCE
     Route: 042
     Dates: start: 20210820
  6. ATEZOLIZUMAB. [Suspect]
     Active Substance: ATEZOLIZUMAB
     Indication: SMALL CELL LUNG CANCER
     Route: 042
  7. ETOPOSIDE. [Suspect]
     Active Substance: ETOPOSIDE
     Indication: SMALL CELL LUNG CANCER
     Route: 065

REACTIONS (3)
  - Pancytopenia [Unknown]
  - Arterial thrombosis [Unknown]
  - Peripheral ischaemia [Unknown]
